FAERS Safety Report 8367571-4 (Version None)
Quarter: 2012Q2

REPORT INFORMATION
  Report Type: 
  Country: None (occurrence: None)
  Receive Date: 20120517
  Receipt Date: 20120514
  Transmission Date: 20120825
  Serious: Yes (Hospitalization)
  Sender: FDA-Public Use
  Company Number: PE-PFIZER INC-2012104886

PATIENT
  Age: 85 Year
  Sex: Female

DRUGS (2)
  1. AMIKACIN [Suspect]
     Indication: INFECTION
     Dosage: SINGLE DOSE
     Dates: start: 20120401
  2. LIPITOR [Suspect]
     Indication: DYSLIPIDAEMIA
     Dosage: 20 MG, 1X/DAY
     Route: 048
     Dates: start: 20100101, end: 20120401

REACTIONS (3)
  - RENAL DISORDER [None]
  - NASOPHARYNGITIS [None]
  - LUNG DISORDER [None]
